FAERS Safety Report 4785519-6 (Version None)
Quarter: 2005Q4

REPORT INFORMATION
  Report Type: 
  Country: None (occurrence: None)
  Receive Date: 20051003
  Receipt Date: 20050920
  Transmission Date: 20060501
  Serious: Yes (Life-Threatening, Hospitalization)
  Sender: FDA-Public Use
  Company Number: PT-JNJFOC-20050806708

PATIENT
  Age: 33 Year
  Sex: Female

DRUGS (7)
  1. REMICADE [Suspect]
     Route: 042
  2. REMICADE [Suspect]
     Route: 042
  3. REMICADE [Suspect]
     Indication: CROHN'S DISEASE
     Route: 042
  4. SULFASALAZINE [Suspect]
     Indication: CROHN'S DISEASE
     Route: 065
  5. HYDROXYZINE [Suspect]
     Indication: CROHN'S DISEASE
     Route: 065
  6. 5-ASA [Concomitant]
     Indication: CROHN'S DISEASE
     Dosage: ABOUT 2 YEARS AGO.
     Route: 065
  7. CORTICOTHERAPY [Concomitant]
     Indication: CROHN'S DISEASE
     Dosage: ABOUT 2 YEARS AGO.
     Route: 065

REACTIONS (7)
  - BONE MARROW FAILURE [None]
  - FEBRILE NEUTROPENIA [None]
  - PHARYNGITIS [None]
  - PNEUMONIA [None]
  - RENAL FAILURE [None]
  - RESPIRATORY FAILURE [None]
  - SEPSIS [None]
